FAERS Safety Report 7890011 (Version 3)
Quarter: 2013Q1

REPORT INFORMATION
  Report Type: Spontaneous
  Country: US (occurrence: US)
  Receive Date: 20110407
  Receipt Date: 20130116
  Transmission Date: 20140127
  Serious: Yes (Hospitalization, Other)
  Sender: FDA-Public Use
  Company Number: US-BAYER-2011-028912

PATIENT
  Age: 29 Year
  Sex: Female

DRUGS (12)
  1. YAZ [Suspect]
     Dosage: UNK
     Dates: start: 200703, end: 200901
  2. DETROL [Concomitant]
     Dosage: 4 MG, UNK
  3. HYDROCODONE W/ACETAMINOPHEN [Concomitant]
     Dosage: 10-500 MG
  4. CELEBREX [Concomitant]
     Dosage: 100 MG, DAILY PRN (AS NEEDED)
  5. ACETAMINOPHEN W/OXYCODONE [Concomitant]
  6. DIPHENOXYLATE/ATROPINE [ATROPINE SULFATE,DIPHENOXYLATE HYDROCHLORI [Concomitant]
  7. PROMETHAZINE [Concomitant]
     Dosage: 25 MG, UNK
  8. SERTRALINE HYDROCHLORIDE [Concomitant]
     Dosage: 100 MG, UNK
  9. CELEXA [Concomitant]
     Dosage: 10 MG, AT BEDTIME
  10. PHENERGAN [Concomitant]
  11. CALCIUM [Concomitant]
  12. PRENATAL FORMULA [Concomitant]

REACTIONS (4)
  - Thrombosis in device [None]
  - Thrombectomy [None]
  - Pain [None]
  - Injury [None]
